FAERS Safety Report 9560758 (Version 1)
Quarter: 2013Q3

REPORT INFORMATION
  Report Type: Spontaneous
  Country: US (occurrence: US)
  Receive Date: 20130927
  Receipt Date: 20130927
  Transmission Date: 20140515
  Serious: No
  Sender: FDA-Public Use
  Company Number: US-BIOGENIDEC-2013BI054023

PATIENT
  Age: 64 Year
  Sex: Female

DRUGS (8)
  1. TECFIDERA [Suspect]
     Indication: MULTIPLE SCLEROSIS
     Route: 048
     Dates: start: 201305
  2. TECFIDERA [Suspect]
     Indication: MULTIPLE SCLEROSIS
     Route: 048
  3. AVONEX [Concomitant]
     Indication: MULTIPLE SCLEROSIS
     Route: 030
  4. GABAPENTIN [Concomitant]
     Indication: MUSCLE SPASMS
  5. EPIDURAL (NOS) [Concomitant]
     Indication: BACK PAIN
     Dates: start: 20130515, end: 20130515
  6. BLOOD PRESSURE MEDICATION (NOS) [Concomitant]
     Indication: AORTIC VALVE INCOMPETENCE
  7. DILTIAZEM [Concomitant]
     Indication: AORTIC VALVE INCOMPETENCE
  8. LASIX [Concomitant]
     Indication: AORTIC VALVE INCOMPETENCE

REACTIONS (2)
  - Musculoskeletal pain [Not Recovered/Not Resolved]
  - Muscle spasms [Not Recovered/Not Resolved]
